FAERS Safety Report 11069661 (Version 1)
Quarter: 2015Q2

REPORT INFORMATION
  Report Type: Other
  Country: DE (occurrence: DE)
  Receive Date: 20150427
  Receipt Date: 20150427
  Transmission Date: 20150821
  Serious: Yes (Congenital Anomaly)
  Sender: FDA-Public Use
  Company Number: DE-GLENMARK GENERICS INC.-2015GMK016357

PATIENT
  Age: 1 Day
  Sex: Male
  Weight: 3.12 kg

DRUGS (6)
  1. METFORMIN [Suspect]
     Active Substance: METFORMIN HYDROCHLORIDE
     Indication: PRODUCT USED FOR UNKNOWN INDICATION
     Dosage: 1000 MG, OD
     Route: 064
  2. VITAMIN D [Concomitant]
     Active Substance: CHOLECALCIFEROL
     Indication: PRODUCT USED FOR UNKNOWN INDICATION
     Dosage: 2000 IU, OD
     Route: 064
     Dates: start: 20140127, end: 20141018
  3. ARIXTRA [Concomitant]
     Active Substance: FONDAPARINUX SODIUM
     Indication: PRODUCT USED FOR UNKNOWN INDICATION
     Dosage: UNK
     Route: 064
  4. CALCIUM [Concomitant]
     Active Substance: CALCIUM
     Indication: PRODUCT USED FOR UNKNOWN INDICATION
     Dosage: 1000 MG, OD
     Route: 064
     Dates: start: 20140127, end: 20141018
  5. FOLIO                              /06866801/ [Concomitant]
     Indication: PROPHYLAXIS OF NEURAL TUBE DEFECT
     Dosage: 0.4 MG, BID
     Route: 064
     Dates: start: 20140127, end: 20141018
  6. FORSTEO [Concomitant]
     Active Substance: TERIPARATIDE
     Indication: PRODUCT USED FOR UNKNOWN INDICATION
     Dosage: 20MCG, OD
     Route: 064
     Dates: start: 20140127, end: 20140223

REACTIONS (2)
  - Foetal exposure during pregnancy [Unknown]
  - Talipes [Recovered/Resolved with Sequelae]

NARRATIVE: CASE EVENT DATE: 20141018
